FAERS Safety Report 23469538 (Version 2)
Quarter: 2024Q1

REPORT INFORMATION
  Report Type: Report from Study
  Country: US (occurrence: US)
  Receive Date: 20240202
  Receipt Date: 20240221
  Transmission Date: 20240410
  Serious: Yes (Other)
  Sender: FDA-Public Use
  Company Number: US-UCBSA-2024002832

PATIENT
  Age: 37 Year
  Sex: Male

DRUGS (1)
  1. CERTOLIZUMAB PEGOL [Suspect]
     Active Substance: CERTOLIZUMAB PEGOL
     Indication: Psoriatic arthropathy
     Dosage: 200 MILLIGRAM, EV 2 WEEKS(QOW)
     Route: 058
     Dates: start: 20231002

REACTIONS (7)
  - Colitis microscopic [Not Recovered/Not Resolved]
  - Injection site discharge [Not Recovered/Not Resolved]
  - Nasopharyngitis [Not Recovered/Not Resolved]
  - Eye infection [Not Recovered/Not Resolved]
  - Illness [Not Recovered/Not Resolved]
  - Incorrect dose administered [Unknown]
  - Needle issue [Unknown]

NARRATIVE: CASE EVENT DATE: 20231002
